FAERS Safety Report 10304159 (Version 6)
Quarter: 2014Q4

REPORT INFORMATION
  Report Type: Spontaneous
  Country: FR (occurrence: FR)
  Receive Date: 20140714
  Receipt Date: 20141016
  Transmission Date: 20150528
  Serious: Yes (Death, Life-Threatening, Hospitalization, Other)
  Sender: FDA-Public Use
  Company Number: FR-BAXTER-2014BAX037101

PATIENT
  Age: 8 Year
  Sex: Male
  Weight: 19 kg

DRUGS (10)
  1. DIPRIVAN [Suspect]
     Active Substance: PROPOFOL
     Indication: SEDATION
     Route: 042
     Dates: start: 20140522
  2. ADVATE [Suspect]
     Active Substance: ANTIHEMOPHILIC FACTOR, HUMAN RECOMBINANT
     Indication: HAEMOPHILIA
     Route: 042
     Dates: start: 20140522, end: 20140524
  3. SCOPODERM [Concomitant]
     Active Substance: SCOPOLAMINE
     Indication: PRODUCT USED FOR UNKNOWN INDICATION
     Route: 062
  4. DEPAKINE 500MG [Concomitant]
     Indication: PRODUCT USED FOR UNKNOWN INDICATION
     Route: 048
  5. KEPPRA [Concomitant]
     Active Substance: LEVETIRACETAM
     Indication: PRODUCT USED FOR UNKNOWN INDICATION
     Route: 048
  6. SABRIL [Concomitant]
     Active Substance: VIGABATRIN
     Indication: PRODUCT USED FOR UNKNOWN INDICATION
     Route: 048
  7. ADVATE [Suspect]
     Active Substance: ANTIHEMOPHILIC FACTOR, HUMAN RECOMBINANT
     Route: 042
     Dates: start: 20140522, end: 20140524
  8. SUFENTANIL [Suspect]
     Active Substance: SUFENTANIL
     Indication: SEDATION
     Route: 042
     Dates: start: 20140522
  9. ADVATE [Suspect]
     Active Substance: ANTIHEMOPHILIC FACTOR, HUMAN RECOMBINANT
     Indication: HAEMOPHILIA
     Route: 042
     Dates: start: 20140522, end: 20140524
  10. ADVATE [Suspect]
     Active Substance: ANTIHEMOPHILIC FACTOR, HUMAN RECOMBINANT
     Route: 042
     Dates: start: 20140522, end: 20140524

REACTIONS (9)
  - Apnoeic attack [Recovered/Resolved]
  - Somnolence [Unknown]
  - Respiratory disorder [Fatal]
  - Central nervous system lesion [Unknown]
  - Nervous system disorder [Fatal]
  - Rales [Unknown]
  - Condition aggravated [Fatal]
  - Alveolar lung disease [Unknown]
  - Hyporesponsive to stimuli [Unknown]

NARRATIVE: CASE EVENT DATE: 20140522
